FAERS Safety Report 9842231 (Version 4)
Quarter: 2014Q3

REPORT INFORMATION
  Report Type: Spontaneous
  Country: US (occurrence: US)
  Receive Date: 20140124
  Receipt Date: 20140919
  Transmission Date: 20150326
  Serious: Yes (Other)
  Sender: FDA-Public Use
  Company Number: US-GLAXOSMITHKLINE-A1058099A

PATIENT
  Age: 84 Year
  Sex: Female

DRUGS (1)
  1. FLONASE [Suspect]
     Active Substance: FLUTICASONE PROPIONATE
     Indication: RESPIRATORY DISORDER
     Dates: start: 20081229

REACTIONS (3)
  - Dysphonia [Unknown]
  - Shoulder operation [Unknown]
  - Multiple allergies [Unknown]
